FAERS Safety Report 4781723-1 (Version None)
Quarter: 2005Q3

REPORT INFORMATION
  Report Type: 
  Country: None (occurrence: None)
  Receive Date: 20050927
  Receipt Date: 20050913
  Transmission Date: 20060218
  Serious: Yes (Other)
  Sender: FDA-Public Use
  Company Number: 2005127062

PATIENT
  Age: 49 Year
  Sex: Male
  Weight: 86.1834 kg

DRUGS (2)
  1. SUDAFED SINUS + ALLERGY (PSEUDOEPHEDRINE, CHLORPHENIRAMINE) [Suspect]
     Indication: HYPERSENSITIVITY
     Dosage: 2 TABLETS ONCE, ORAL
     Route: 048
     Dates: start: 20050911, end: 20050911
  2. ESCITALOPRAM OXALATE [Concomitant]

REACTIONS (5)
  - DRY MOUTH [None]
  - FEELING JITTERY [None]
  - LOSS OF CONSCIOUSNESS [None]
  - MALAISE [None]
  - ROAD TRAFFIC ACCIDENT [None]
